FAERS Safety Report 21316422 (Version 1)
Quarter: 2022Q3

REPORT INFORMATION
  Report Type: Spontaneous
  Country: GB (occurrence: GB)
  Receive Date: 20220910
  Receipt Date: 20220910
  Transmission Date: 20221027
  Serious: Yes (Other)
  Sender: FDA-Public Use
  Company Number: GB-MHRA-MED-202208312218034900-WSKHJ

PATIENT
  Sex: Female

DRUGS (5)
  1. SUMATRIPTAN [Suspect]
     Active Substance: SUMATRIPTAN
     Indication: Migraine
     Dosage: 50MG ONCE DAY.; ;
     Dates: start: 20220822
  2. ASPIRIN [Concomitant]
     Active Substance: ASPIRIN
     Indication: Migraine
  3. DESOGESTREL [Concomitant]
     Active Substance: DESOGESTREL
     Indication: Heavy menstrual bleeding
  4. ACETAMINOPHEN [Concomitant]
     Active Substance: ACETAMINOPHEN
     Indication: Migraine
  5. PENICILLIN V [Concomitant]
     Active Substance: PENICILLIN V
     Indication: Tonsillitis
     Dates: start: 20220720

REACTIONS (2)
  - Vision blurred [Recovering/Resolving]
  - Diplopia [Recovering/Resolving]
